FAERS Safety Report 9158525 (Version 1)
Quarter: 2013Q1

REPORT INFORMATION
  Report Type: Spontaneous
  Country: US (occurrence: US)
  Receive Date: 20130312
  Receipt Date: 20130312
  Transmission Date: 20140127
  Serious: Yes (Other)
  Sender: FDA-Public Use
  Company Number: US-AMGEN-USASP2012066651

PATIENT
  Age: 31 Year
  Sex: Female
  Weight: 77.1 kg

DRUGS (6)
  1. NEULASTA [Suspect]
     Indication: NEUTROPENIA
     Dosage: UNK UNK, EVERY OTHER WEEK
     Dates: start: 20120112, end: 20120524
  2. DECADRON [Concomitant]
     Dosage: UNK AFTER 8 CHEMOS
     Dates: start: 20120111, end: 20120526
  3. CYCLOPHOSPHAMIDE [Concomitant]
     Indication: BREAST CANCER
     Dosage: UNK
  4. DOXORUBICIN [Concomitant]
     Indication: BREAST CANCER
     Dosage: UNK
  5. IRON [Concomitant]
     Dosage: UNK
     Dates: start: 201202, end: 201303
  6. PRENATAL VITAMINS                  /02014401/ [Concomitant]
     Dosage: UNK
     Dates: start: 201207

REACTIONS (4)
  - Oligohydramnios [Recovered/Resolved]
  - Premature delivery [Recovered/Resolved]
  - Tenderness [Unknown]
  - Bone pain [Unknown]
